FAERS Safety Report 16861128 (Version 2)
Quarter: 2020Q3

REPORT INFORMATION
  Report Type: Spontaneous
  Country: US (occurrence: US)
  Receive Date: 20190927
  Receipt Date: 20200828
  Transmission Date: 20201102
  Serious: Yes (Other)
  Sender: FDA-Public Use
  Company Number: US-GILEAD-2019-0429692

PATIENT
  Age: 54 Year
  Sex: Male
  Weight: 130.16 kg

DRUGS (49)
  1. ATRIPLA [Suspect]
     Active Substance: EFAVIRENZ\EMTRICITABINE\TENOFOVIR DISOPROXIL FUMARATE
     Dosage: UNK
     Route: 065
     Dates: start: 2012, end: 20180501
  2. COMBIVIR [Concomitant]
     Active Substance: LAMIVUDINE\ZIDOVUDINE
  3. ZIAGEN [Concomitant]
     Active Substance: ABACAVIR SULFATE
  4. INDOMETHACIN [INDOMETACIN] [Concomitant]
     Active Substance: INDOMETHACIN
  5. HYDROCODONE [Concomitant]
     Active Substance: HYDROCODONE
  6. METOLAZONE. [Concomitant]
     Active Substance: METOLAZONE
  7. OXYCODONE [Concomitant]
     Active Substance: OXYCODONE
  8. POTASSIUM CLORIDE 40 [Concomitant]
     Active Substance: POTASSIUM CHLORIDE
  9. ZOLPIDEM TARTATE [Concomitant]
     Active Substance: ZOLPIDEM TARTRATE
  10. KLOR?CON [Concomitant]
     Active Substance: POTASSIUM CHLORIDE
  11. BENAZEPRIL [Concomitant]
     Active Substance: BENAZEPRIL HYDROCHLORIDE
  12. NIFEDIPINE. [Concomitant]
     Active Substance: NIFEDIPINE
  13. EPIVIR [Concomitant]
     Active Substance: LAMIVUDINE
  14. DICLOFENAC SODIUM. [Concomitant]
     Active Substance: DICLOFENAC SODIUM
  15. CIALIS [Concomitant]
     Active Substance: TADALAFIL
  16. COLCHICINE. [Concomitant]
     Active Substance: COLCHICINE
  17. DILTIAZEM. [Concomitant]
     Active Substance: DILTIAZEM
  18. SODIUM BICARBONATE. [Concomitant]
     Active Substance: SODIUM BICARBONATE
  19. VALSARTAN. [Concomitant]
     Active Substance: VALSARTAN
  20. ATRIPLA [Suspect]
     Active Substance: EFAVIRENZ\EMTRICITABINE\TENOFOVIR DISOPROXIL FUMARATE
     Indication: HIV INFECTION
     Dosage: UNK
     Route: 048
     Dates: start: 2014, end: 2018
  21. LISINOPRIL. [Concomitant]
     Active Substance: LISINOPRIL
  22. CHLORTHALIDONE. [Concomitant]
     Active Substance: CHLORTHALIDONE
  23. DUTOPROL [Concomitant]
     Active Substance: HYDROCHLOROTHIAZIDE\METOPROLOL SUCCINATE
  24. TAMSULOSIN [Concomitant]
     Active Substance: TAMSULOSIN
  25. ALLOPURINOL. [Concomitant]
     Active Substance: ALLOPURINOL
  26. EPZICOM [Concomitant]
     Active Substance: ABACAVIR SULFATE\LAMIVUDINE
  27. ATORVASTATIN [Concomitant]
     Active Substance: ATORVASTATIN
  28. LEVITRA [Concomitant]
     Active Substance: VARDENAFIL HYDROCHLORIDE
  29. TRUVADA [Suspect]
     Active Substance: EMTRICITABINE\TENOFOVIR DISOPROXIL FUMARATE
     Indication: HIV INFECTION
     Dosage: UNK
     Route: 065
     Dates: start: 20090903, end: 20121222
  30. CALCITRIOL. [Concomitant]
     Active Substance: CALCITRIOL
  31. CEFDINIR. [Concomitant]
     Active Substance: CEFDINIR
  32. GENTAMICIN. [Concomitant]
     Active Substance: GENTAMICIN
  33. HYDRALAZINE [Concomitant]
     Active Substance: HYDRALAZINE HYDROCHLORIDE
  34. CALCIUM ACETATE. [Concomitant]
     Active Substance: CALCIUM ACETATE
  35. CALPHRON [Concomitant]
  36. LOTREL [LOTEPREDNOL ETABONATE] [Concomitant]
     Active Substance: LOTEPREDNOL ETABONATE
  37. TORSEMIDE. [Concomitant]
     Active Substance: TORSEMIDE
  38. LASIX [Concomitant]
     Active Substance: FUROSEMIDE
  39. METOPROLOL/HCTZ [Concomitant]
     Active Substance: HYDROCHLOROTHIAZIDE\METOPROLOL
  40. EDURANT [Concomitant]
     Active Substance: RILPIVIRINE HYDROCHLORIDE
  41. TRIZIVIR [Concomitant]
     Active Substance: ABACAVIR SULFATE\LAMIVUDINE\ZIDOVUDINE
  42. MELOXICAM. [Concomitant]
     Active Substance: MELOXICAM
  43. AMLODIPINE [Concomitant]
     Active Substance: AMLODIPINE BESYLATE
  44. KALETRA [Concomitant]
     Active Substance: LOPINAVIR\RITONAVIR
  45. HALFLYTELY + BISACODYL BOWEL PREP KIT [Concomitant]
  46. ISENTRESS [Concomitant]
     Active Substance: RALTEGRAVIR POTASSIUM
  47. OLMESARTAN MEDOXOMIL. [Concomitant]
     Active Substance: OLMESARTAN MEDOXOMIL
  48. SULFAMETHOXAZOLE [Concomitant]
     Active Substance: SULFAMETHOXAZOLE
  49. TRIAMCINOLONE [Concomitant]
     Active Substance: TRIAMCINOLONE

REACTIONS (14)
  - Emotional distress [Not Recovered/Not Resolved]
  - Chronic kidney disease [Not Recovered/Not Resolved]
  - End stage renal disease [Not Recovered/Not Resolved]
  - Loss of personal independence in daily activities [Unknown]
  - Anxiety [Not Recovered/Not Resolved]
  - Diffuse mesangial sclerosis [Not Recovered/Not Resolved]
  - Depression [Not Recovered/Not Resolved]
  - Anhedonia [Not Recovered/Not Resolved]
  - Renal failure [Recovered/Resolved]
  - Pain [Not Recovered/Not Resolved]
  - Economic problem [Not Recovered/Not Resolved]
  - Fatigue [Unknown]
  - Decreased activity [Unknown]
  - Quality of life decreased [Unknown]

NARRATIVE: CASE EVENT DATE: 2013
